FAERS Safety Report 5286046-2 (Version None)
Quarter: 2007Q1

REPORT INFORMATION
  Report Type: 
  Country: None (occurrence: None)
  Receive Date: 20070329
  Receipt Date: 20070320
  Transmission Date: 20070707
  Serious: Yes (Hospitalization, Other)
  Sender: FDA-Public Use
  Company Number: 231967K07USA

PATIENT
  Age: 47 Year
  Sex: Female
  Weight: 70.3075 kg

DRUGS (7)
  1. REBIF [Suspect]
     Indication: MULTIPLE SCLEROSIS
     Dosage: 44 MCG, 3 IN 1 WEEKS, SUBCUTANEOUS
     Route: 058
     Dates: start: 20021209, end: 20060929
  2. REBIF [Suspect]
     Indication: MULTIPLE SCLEROSIS
     Dosage: 44 MCG, 3 IN 1 WEEKS, SUBCUTANEOUS
     Route: 058
     Dates: start: 20070106
  3. ROBINUL (GLYCOPYRRONIUM BROMIDE) [Concomitant]
  4. PROVIGIL [Concomitant]
  5. NASONEX [Concomitant]
  6. FIBERCON (POLYCARBOPHIL CALCIUM) [Concomitant]
  7. CALCIUM (CALCIUM-SANDOZ [Concomitant]

REACTIONS (1)
  - BREAST CANCER FEMALE [None]
